FAERS Safety Report 4718878-0 (Version None)
Quarter: 2005Q3

REPORT INFORMATION
  Report Type: 
  Country: None (occurrence: None)
  Receive Date: 20050719
  Receipt Date: 20050705
  Transmission Date: 20060218
  Serious: Yes (Death)
  Sender: FDA-Public Use
  Company Number: FR_050706767

PATIENT
  Age: 54 Year
  Sex: Male
  Weight: 71 kg

DRUGS (9)
  1. XIGRIS [Suspect]
     Indication: SEPTIC SHOCK
     Dates: start: 20050421
  2. HUMULIN   /PRI/  (INSULIN HUMAN) [Concomitant]
  3. HEPARIN [Concomitant]
  4. ACUPAN [Concomitant]
  5. TAZOCILLINE [Concomitant]
  6. MIDAZOLAM HCL [Concomitant]
  7. FLUCONAZOLE [Concomitant]
  8. HYDROCORTISONE (HYDROCORTISONE   /00028601/) [Concomitant]
  9. MORPHINE [Concomitant]

REACTIONS (17)
  - ALANINE AMINOTRANSFERASE INCREASED [None]
  - ASPARTATE AMINOTRANSFERASE INCREASED [None]
  - BLOOD ALKALINE PHOSPHATASE INCREASED [None]
  - BLOOD BILIRUBIN INCREASED [None]
  - CARBON DIOXIDE ABNORMAL [None]
  - CATHETER SITE HAEMORRHAGE [None]
  - CEREBELLAR HAEMORRHAGE [None]
  - CEREBRAL HAEMORRHAGE [None]
  - COMA [None]
  - FIBRIN D DIMER INCREASED [None]
  - GAMMA-GLUTAMYLTRANSFERASE INCREASED [None]
  - HAEMOGLOBIN DECREASED [None]
  - INTRAVENTRICULAR HAEMORRHAGE [None]
  - MENINGORRHAGIA [None]
  - MYDRIASIS [None]
  - PROTEIN TOTAL DECREASED [None]
  - RENAL FAILURE [None]
